FAERS Safety Report 19643633 (Version 1)
Quarter: 2021Q3

REPORT INFORMATION
  Report Type: Spontaneous
  Country: US (occurrence: US)
  Receive Date: 20210730
  Receipt Date: 20210730
  Transmission Date: 20211014
  Serious: Yes (Other)
  Sender: FDA-Public Use
  Company Number: US-ENDO PHARMACEUTICALS INC-2021-008585

PATIENT
  Age: 61 Year
  Sex: Female

DRUGS (2)
  1. RANITIDINE HYDROCHLORIDE. [Suspect]
     Active Substance: RANITIDINE HYDROCHLORIDE
     Indication: DYSPEPSIA
     Dosage: 150 MG, JAN?2005 UNTIL JUN?2019, AT A DOSAGE OF 150MG PERIODS OF NON?USE
     Route: 065
     Dates: start: 200501, end: 201906
  2. RANITIDINE. [Suspect]
     Active Substance: RANITIDINE
     Indication: DYSPEPSIA
     Dosage: 150 MG, JAN?2005 UNTIL JUN?2019, AT A DOSAGE OF 150MG PERIODS OF NON?USE
     Route: 065
     Dates: start: 200501, end: 201906

REACTIONS (1)
  - Breast cancer stage II [Recovering/Resolving]

NARRATIVE: CASE EVENT DATE: 20191101
